FAERS Safety Report 15567346 (Version 1)
Quarter: 2018Q4

REPORT INFORMATION
  Report Type: Spontaneous
  Country: IL (occurrence: IL)
  Receive Date: 20181030
  Receipt Date: 20181030
  Transmission Date: 20190205
  Serious: Yes (Hospitalization, Other)
  Sender: FDA-Public Use
  Company Number: IL-ASTRAZENECA-2018SF20654

PATIENT
  Age: 65 Year
  Sex: Male

DRUGS (1)
  1. BENRALIZUMAB. [Suspect]
     Active Substance: BENRALIZUMAB
     Route: 058
     Dates: start: 20180408, end: 201810

REACTIONS (10)
  - Lung infiltration [Unknown]
  - Drug ineffective [Unknown]
  - Dyspnoea [Unknown]
  - Pyrexia [Recovered/Resolved]
  - Oedema [Unknown]
  - Pulmonary congestion [Unknown]
  - Hypoxia [Unknown]
  - Wheezing [Unknown]
  - Asthma [Unknown]
  - Eosinophil count increased [Unknown]
